FAERS Safety Report 11091897 (Version 1)
Quarter: 2015Q2

REPORT INFORMATION
  Report Type: Spontaneous
  Country: AU (occurrence: AU)
  Receive Date: 20150505
  Receipt Date: 20150505
  Transmission Date: 20150821
  Serious: Yes (Other)
  Sender: FDA-Public Use
  Company Number: AU-TAKEDA-2015TJP007690

PATIENT
  Sex: Female

DRUGS (1)
  1. BRINTELLIX [Suspect]
     Active Substance: VORTIOXETINE HYDROBROMIDE
     Indication: BORDERLINE PERSONALITY DISORDER
     Dosage: UNK
     Route: 065

REACTIONS (8)
  - Muscle twitching [Unknown]
  - Crying [Unknown]
  - Emotional disorder [Unknown]
  - Off label use [Unknown]
  - Nausea [Unknown]
  - Dyspnoea [Unknown]
  - Impaired work ability [Unknown]
  - Loss of consciousness [Unknown]
